FAERS Safety Report 8384112-6 (Version None)
Quarter: 2012Q2

REPORT INFORMATION
  Report Type: 
  Country: None (occurrence: None)
  Receive Date: 20120524
  Receipt Date: 20120511
  Transmission Date: 20120825
  Serious: Yes (Hospitalization)
  Sender: FDA-Public Use
  Company Number: FR-ROCHE-1068797

PATIENT
  Sex: Male

DRUGS (2)
  1. ROCEPHIN [Suspect]
     Indication: LUNG DISORDER
     Route: 030
     Dates: start: 20120206, end: 20120210
  2. LEVOTHYROXINE SODIUM [Concomitant]

REACTIONS (1)
  - ANTI FACTOR V ANTIBODY POSITIVE [None]
